FAERS Safety Report 7175764-7 (Version None)
Quarter: 2010Q4

REPORT INFORMATION
  Report Type: 
  Country: None (occurrence: None)
  Receive Date: 20101220
  Receipt Date: 20100331
  Transmission Date: 20110411
  Serious: No
  Sender: FDA-Public Use
  Company Number: US-AMGEN-TCS398288

PATIENT

DRUGS (16)
  1. ENBREL [Suspect]
     Indication: RHEUMATOID ARTHRITIS
     Dosage: 50 MG, QWK
     Route: 058
  2. METHOTREXATE [Concomitant]
     Dosage: 2.5 MG, QWK
     Route: 048
  3. UNSPECIFIED STEROIDS [Concomitant]
  4. FOLIC ACID [Concomitant]
     Dosage: 1 MG, BID
     Route: 048
  5. IBUPROFEN [Concomitant]
     Dosage: 400 MG, QID
     Route: 048
  6. INFLUENZA A (H1N1) MONOVALENT VACCINE [Concomitant]
     Dosage: UNK UNK, UNK
     Dates: start: 20100212
  7. ADALIMUMAB [Concomitant]
     Dosage: 40 MG, Q2WK
     Route: 058
  8. ARTIFICIAL TEARS [Concomitant]
     Dosage: 1 GTT, TID
     Route: 047
  9. OMEPRAZOLE [Concomitant]
     Dosage: 20 MG, QD
     Route: 048
  10. CALCIUM POLYCARBOPHIL [Concomitant]
     Dosage: 625 MG, UNK
     Route: 048
  11. ACETAMINOPHEN [Concomitant]
     Dosage: 325 MG, UNK
     Route: 048
  12. CALCIUM CARBONATE/VITAMIN D [Concomitant]
     Dosage: UNK UNK, QD
     Route: 048
  13. NAPROXEN [Concomitant]
     Dosage: 250 MG, UNK
     Route: 048
  14. PREDNISONE [Concomitant]
  15. IBANDRONATE SODIUM [Concomitant]
  16. ADALIMUMAB [Concomitant]
     Dosage: 40 MG, Q2WK

REACTIONS (6)
  - FULL BLOOD COUNT ABNORMAL [None]
  - OSTEOPOROSIS [None]
  - RHEUMATOID ARTHRITIS [None]
  - SPINAL OSTEOARTHRITIS [None]
  - THERAPEUTIC RESPONSE DECREASED [None]
  - UPPER RESPIRATORY TRACT INFECTION [None]
